FAERS Safety Report 18082658 (Version 2)
Quarter: 2020Q3

REPORT INFORMATION
  Report Type: Spontaneous
  Country: US (occurrence: US)
  Receive Date: 20200729
  Receipt Date: 20200730
  Transmission Date: 20201103
  Serious: Yes (Disabling)
  Sender: FDA-Public Use
  Company Number: US-ROCHE-2649052

PATIENT
  Age: 52 Year
  Sex: Female
  Weight: 63.56 kg

DRUGS (5)
  1. BACLOFEN. [Concomitant]
     Active Substance: BACLOFEN
     Indication: MUSCLE SPASTICITY
     Dosage: TAKEN TWO TO FOUR TIMES A DAY AS NEEDED
     Route: 048
     Dates: start: 20200122
  2. OCREVUS [Suspect]
     Active Substance: OCRELIZUMAB
     Dosage: RECEIVED 2ND 1/2 DOSE IN MAR/2020
     Route: 042
     Dates: start: 202003
  3. OXCARBAZEPINE. [Concomitant]
     Active Substance: OXCARBAZEPINE
     Indication: MUSCLE SPASMS
     Dosage: ONGOING? YES
     Route: 048
  4. OCREVUS [Suspect]
     Active Substance: OCRELIZUMAB
     Dosage: 300 MG ON DAY 1 AND DAY 15; ONGOING? NO
     Route: 042
     Dates: start: 20200131, end: 20200624
  5. OCREVUS [Suspect]
     Active Substance: OCRELIZUMAB
     Indication: RELAPSING-REMITTING MULTIPLE SCLEROSIS
     Route: 042
     Dates: start: 202002

REACTIONS (1)
  - Muscle fatigue [Not Recovered/Not Resolved]

NARRATIVE: CASE EVENT DATE: 202003
